FAERS Safety Report 7748201-9 (Version None)
Quarter: 2011Q3

REPORT INFORMATION
  Report Type: 
  Country: None (occurrence: None)
  Receive Date: 20110913
  Receipt Date: 20110607
  Transmission Date: 20111222
  Serious: Yes (Hospitalization)
  Sender: FDA-Public Use
  Company Number: NL-ELI_LILLY_AND_COMPANY-NL201106003505

PATIENT
  Sex: Male
  Weight: 68 kg

DRUGS (1)
  1. CYMBALTA [Suspect]
     Dosage: 30 MG, QD
     Dates: start: 20110401, end: 20110401

REACTIONS (1)
  - JAUNDICE [None]
